FAERS Safety Report 5847080-4 (Version None)
Quarter: 2008Q3

REPORT INFORMATION
  Report Type: 
  Country: None (occurrence: None)
  Receive Date: 20080815
  Receipt Date: 20080805
  Transmission Date: 20090109
  Serious: Yes (Other)
  Sender: FDA-Public Use
  Company Number: US-ABBOTT-08P-163-0469221-00

PATIENT
  Sex: Female
  Weight: 79.904 kg

DRUGS (14)
  1. HUMIRA [Suspect]
     Indication: CROHN'S DISEASE
     Route: 050
     Dates: start: 20060101
  2. MOMETASONE FUROATE [Concomitant]
     Indication: DRUG USE FOR UNKNOWN INDICATION
     Dosage: 2 SPRAYS TO EACH NARE
     Route: 045
  3. EZETIMIBE [Concomitant]
     Indication: BLOOD CHOLESTEROL
     Route: 048
  4. SIMVASTATIN [Concomitant]
     Indication: BLOOD CHOLESTEROL
     Route: 048
  5. POTASSIUM CHLORIDE [Concomitant]
     Indication: MINERAL SUPPLEMENTATION
     Route: 048
  6. TRAZODONE HCL [Concomitant]
     Indication: DEPRESSION
     Dosage: THREE PILLS AT BEDTIME
     Route: 048
  7. ACETYLSALICYLIC ACID SRT [Concomitant]
     Indication: ANTICOAGULANT THERAPY
     Dosage: ONE PILL ORALLY AT NIGHT
     Route: 048
  8. FUROSEMIDE [Concomitant]
     Indication: BLOOD PRESSURE
     Dosage: 60MG DAILY, 20MG/1.5 PILLS TWICE A DAY
     Route: 048
  9. VERAPAMIL SA [Concomitant]
     Indication: BLOOD PRESSURE
     Route: 048
  10. NITROGLYCERIN [Concomitant]
     Indication: CHEST PAIN
     Route: 048
  11. RISEDRONATE SODIUM [Concomitant]
     Indication: PROBIOTIC THERAPY
     Route: 048
  12. DICLOFENAC DIETHYLAMINE [Concomitant]
     Indication: INFLAMMATION
     Route: 048
  13. ALBUTEROL [Concomitant]
     Indication: RESPIRATORY DISORDER
     Dosage: 90 MCG, 2 PUFFS 4 TIMES DAILY, AS NEEDED
     Route: 045
  14. PROCET [Concomitant]
     Indication: PAIN
     Dosage: ONE TABLET EVERY FOUR HOURS AS NEEDED
     Route: 048
     Dates: start: 20080729

REACTIONS (1)
  - FULL BLOOD COUNT ABNORMAL [None]
